FAERS Safety Report 23428691 (Version 1)
Quarter: 2024Q1

REPORT INFORMATION
  Report Type: Spontaneous
  Country: US (occurrence: None)
  Receive Date: 20240122
  Receipt Date: 20240122
  Transmission Date: 20240410
  Serious: No
  Sender: FDA-Public Use
  Company Number: None

PATIENT

DRUGS (3)
  1. CIPRO [Suspect]
     Active Substance: CIPROFLOXACIN HYDROCHLORIDE
  2. AMIODARONE [Suspect]
     Active Substance: AMIODARONE
  3. METOPROLOL SUCCINATE [Suspect]
     Active Substance: METOPROLOL SUCCINATE

REACTIONS (6)
  - Circumstance or information capable of leading to medication error [None]
  - Product dispensing error [None]
  - Incorrect dose administered [None]
  - Product prescribing error [None]
  - Wrong schedule [None]
  - Intercepted product dispensing error [None]

NARRATIVE: CASE EVENT DATE: 20231204
